FAERS Safety Report 17051417 (Version 1)
Quarter: 2019Q4

REPORT INFORMATION
  Report Type: Other
  Country: IT (occurrence: IT)
  Receive Date: 20191120
  Receipt Date: 20191120
  Transmission Date: 20200122
  Serious: Yes (Death)
  Sender: FDA-Public Use
  Company Number: IT-CELLTRION INC.-2019IT026589

PATIENT

DRUGS (1)
  1. TRUXIMA [Suspect]
     Active Substance: RITUXIMAB-ABBS
     Indication: MICROSCOPIC POLYANGIITIS
     Dosage: 1000 MG, CYCLIC
     Route: 041
     Dates: start: 20190826, end: 20190913

REACTIONS (7)
  - Lymphocyte count decreased [Fatal]
  - Dyspnoea [Fatal]
  - Pyrexia [Fatal]
  - Cyanosis [Fatal]
  - Oxygen saturation decreased [Fatal]
  - Bronchopulmonary aspergillosis [Fatal]
  - Product use issue [Unknown]

NARRATIVE: CASE EVENT DATE: 20191003
